FAERS Safety Report 6697368-2 (Version None)
Quarter: 2010Q2

REPORT INFORMATION
  Report Type: 
  Country: None (occurrence: None)
  Receive Date: 20100426
  Receipt Date: 20100414
  Transmission Date: 20101027
  Serious: Yes (Disabling)
  Sender: FDA-Public Use
  Company Number: GB-ELI_LILLY_AND_COMPANY-GB201004003836

PATIENT
  Age: 67 Year
  Sex: Female
  Weight: 52 kg

DRUGS (1)
  1. ALIMTA [Suspect]
     Indication: LUNG ADENOCARCINOMA
     Dosage: 705 MG, UNK
     Route: 042
     Dates: start: 20091211, end: 20100212

REACTIONS (3)
  - CYANOSIS [None]
  - RAYNAUD'S PHENOMENON [None]
  - SKIN ULCER [None]
